FAERS Safety Report 24883262 (Version 1)
Quarter: 2025Q1

REPORT INFORMATION
  Report Type: Spontaneous
  Country: AU (occurrence: AU)
  Receive Date: 20250124
  Receipt Date: 20250124
  Transmission Date: 20250408
  Serious: Yes (Hospitalization, Other)
  Sender: RANBAXY
  Company Number: AU-SUN PHARMACEUTICAL INDUSTRIES LTD-2025R1-490135

PATIENT
  Age: 47 Year
  Sex: Male

DRUGS (11)
  1. DOXORUBICIN [Suspect]
     Active Substance: DOXORUBICIN
     Indication: Hodgkin^s disease
     Route: 042
     Dates: start: 20240815
  2. BRENTUXIMAB VEDOTIN [Suspect]
     Active Substance: BRENTUXIMAB VEDOTIN
     Indication: Hodgkin^s disease
     Route: 042
     Dates: start: 20240815
  3. DACARBAZINE [Suspect]
     Active Substance: DACARBAZINE
     Indication: Hodgkin^s disease
     Route: 042
     Dates: start: 20240815
  4. VINCRISTINE [Suspect]
     Active Substance: VINCRISTINE
     Indication: Hodgkin^s disease
     Route: 042
     Dates: start: 20240815
  5. andesartan cilexetil [Concomitant]
     Indication: Hodgkin^s disease
     Route: 048
     Dates: start: 20240627
  6. PANTOPRAZOLE [Concomitant]
     Active Substance: PANTOPRAZOLE
     Indication: Dyspepsia
     Route: 048
     Dates: start: 20240822
  7. AMOXICILLIN SODIUM [Concomitant]
     Active Substance: AMOXICILLIN SODIUM
     Indication: Upper respiratory tract infection
     Route: 048
     Dates: start: 20240913, end: 20241018
  8. CEFUROXIME AXETIL [Concomitant]
     Active Substance: CEFUROXIME AXETIL
     Indication: Pneumonia
     Route: 048
     Dates: start: 20241010, end: 20241011
  9. FILGRASTIM [Concomitant]
     Active Substance: FILGRASTIM
     Indication: Supportive care
     Route: 058
     Dates: start: 20240913, end: 20241018
  10. LOPERAMIDE HYDROCHLORIDE [Concomitant]
     Active Substance: LOPERAMIDE HYDROCHLORIDE
     Indication: Diarrhoea
     Route: 048
     Dates: start: 20240913
  11. METOPROLOL [Concomitant]
     Active Substance: METOPROLOL
     Indication: Postoperative care
     Route: 048
     Dates: start: 20241008

REACTIONS (2)
  - Pneumonia haemophilus [Recovering/Resolving]
  - Pyrexia [Recovered/Resolved]

NARRATIVE: CASE EVENT DATE: 20241011
